FAERS Safety Report 21116873 (Version 2)
Quarter: 2022Q3

REPORT INFORMATION
  Report Type: Spontaneous
  Country: JP (occurrence: JP)
  Receive Date: 20220722
  Receipt Date: 20220804
  Transmission Date: 20221027
  Serious: Yes (Hospitalization)
  Sender: FDA-Public Use
  Company Number: JP-TEVA-2022-JP-2055631

PATIENT
  Age: 59 Year
  Sex: Male

DRUGS (21)
  1. OLANZAPINE [Interacting]
     Active Substance: OLANZAPINE
     Indication: Vomiting
     Dosage: 5 MG INTERMITTENTLY (FOR A FEW DAYS EVERY 2 WEEKS) FOR 7 MONTHS
     Route: 065
  2. METOCLOPRAMIDE [Interacting]
     Active Substance: METOCLOPRAMIDE
     Indication: Nausea
     Dosage: 15 MILLIGRAM DAILY;
     Route: 065
  3. METOCLOPRAMIDE [Interacting]
     Active Substance: METOCLOPRAMIDE
     Indication: Prophylaxis of nausea and vomiting
  4. METOCLOPRAMIDE [Interacting]
     Active Substance: METOCLOPRAMIDE
     Indication: Vomiting
  5. CLONAZEPAM [Suspect]
     Active Substance: CLONAZEPAM
     Indication: Restlessness
     Dosage: 1.5 MILLIGRAM DAILY;
     Route: 065
  6. CLONAZEPAM [Suspect]
     Active Substance: CLONAZEPAM
     Indication: Insomnia
  7. BROTIZOLAM [Suspect]
     Active Substance: BROTIZOLAM
     Indication: Restlessness
     Dosage: .25 MILLIGRAM DAILY;
     Route: 065
  8. BROTIZOLAM [Suspect]
     Active Substance: BROTIZOLAM
     Indication: Insomnia
  9. EPERISONE HYDROCHLORIDE [Suspect]
     Active Substance: EPERISONE HYDROCHLORIDE
     Indication: Restlessness
     Route: 065
  10. EPERISONE HYDROCHLORIDE [Suspect]
     Active Substance: EPERISONE HYDROCHLORIDE
     Indication: Insomnia
  11. QUETIAPINE [Suspect]
     Active Substance: QUETIAPINE
     Indication: Restlessness
     Dosage: 25 MG ONLY ONCE
     Route: 065
  12. QUETIAPINE [Suspect]
     Active Substance: QUETIAPINE
     Indication: Insomnia
  13. PALONOSETRON [Concomitant]
     Active Substance: PALONOSETRON
     Indication: Nausea
     Route: 065
  14. PALONOSETRON [Concomitant]
     Active Substance: PALONOSETRON
     Indication: Prophylaxis of nausea and vomiting
  15. PALONOSETRON [Concomitant]
     Active Substance: PALONOSETRON
     Indication: Vomiting
  16. DEXAMETHASONE [Concomitant]
     Active Substance: DEXAMETHASONE
     Indication: Nausea
     Route: 065
  17. DEXAMETHASONE [Concomitant]
     Active Substance: DEXAMETHASONE
     Indication: Prophylaxis of nausea and vomiting
  18. DEXAMETHASONE [Concomitant]
     Active Substance: DEXAMETHASONE
     Indication: Vomiting
  19. APREPITANT [Concomitant]
     Active Substance: APREPITANT
     Indication: Nausea
     Dosage: 125 MG OF APREPITANT ONCE AT THE START DAY OF CHEMOTHERAPY
     Route: 065
  20. APREPITANT [Concomitant]
     Active Substance: APREPITANT
     Indication: Prophylaxis of nausea and vomiting
     Dosage: 80 MG OF APREPITANT TWICE (ON THE SECOND AND THIRD DAY OF CHEMOTHERAPY), EVERY 2 WEEKS
     Route: 065
  21. APREPITANT [Concomitant]
     Active Substance: APREPITANT
     Indication: Vomiting

REACTIONS (3)
  - Extrapyramidal disorder [Recovered/Resolved]
  - Drug interaction [Recovered/Resolved]
  - Drug ineffective [Unknown]
